FAERS Safety Report 13452904 (Version 1)
Quarter: 2017Q2

REPORT INFORMATION
  Report Type: Spontaneous
  Country: MY (occurrence: MY)
  Receive Date: 20170418
  Receipt Date: 20170418
  Transmission Date: 20170830
  Serious: Yes (Other)
  Sender: FDA-Public Use
  Company Number: MY-DSJP-DSU-2017-111945

PATIENT

DRUGS (1)
  1. AZOREN [Suspect]
     Active Substance: AMLODIPINE BESYLATE\OLMESARTAN MEDOXOMIL
     Indication: PRODUCT USED FOR UNKNOWN INDICATION
     Dosage: 40/10 MG, UNK

REACTIONS (3)
  - Drug ineffective [Unknown]
  - Hypertension [Unknown]
  - Blood pressure systolic increased [None]
